FAERS Safety Report 19678916 (Version 5)
Quarter: 2022Q3

REPORT INFORMATION
  Report Type: Report from Study
  Country: US (occurrence: US)
  Receive Date: 20210809
  Receipt Date: 20220822
  Transmission Date: 20221027
  Serious: Yes (Death)
  Sender: FDA-Public Use
  Company Number: US-BAYER-2021-166956

PATIENT
  Sex: Male

DRUGS (2)
  1. REGORAFENIB [Suspect]
     Active Substance: REGORAFENIB
     Indication: Bile duct adenocarcinoma
     Dosage: 90 MG
     Route: 048
     Dates: start: 20210527, end: 20210616
  2. NIVOLUMAB [Suspect]
     Active Substance: NIVOLUMAB
     Indication: Bile duct adenocarcinoma
     Dosage: 480 MG
     Route: 042
     Dates: start: 20210527, end: 20210527

REACTIONS (1)
  - Myocardial infarction [Fatal]

NARRATIVE: CASE EVENT DATE: 20210625
